FAERS Safety Report 11043125 (Version 1)
Quarter: 2015Q2

REPORT INFORMATION
  Report Type: Spontaneous
  Country: GB (occurrence: GB)
  Receive Date: 20150417
  Receipt Date: 20150417
  Transmission Date: 20150821
  Serious: Yes (Hospitalization)
  Sender: FDA-Public Use
  Company Number: GB-TEVA-554728ACC

PATIENT
  Age: 19 Year
  Sex: Female

DRUGS (2)
  1. RISPERIDONE. [Suspect]
     Active Substance: RISPERIDONE
     Dosage: 500 MICROGRAM DAILY;
     Route: 048
     Dates: end: 20150327
  2. LYMECYCLINE [Concomitant]
     Active Substance: LYMECYCLINE
     Dosage: UNKNOWN
     Route: 048
     Dates: end: 20150327

REACTIONS (2)
  - Extrapyramidal disorder [Recovered/Resolved]
  - Oculogyric crisis [Recovered/Resolved]

NARRATIVE: CASE EVENT DATE: 20150327
